FAERS Safety Report 15955416 (Version 1)
Quarter: 2019Q1

REPORT INFORMATION
  Report Type: Spontaneous
  Country: US (occurrence: US)
  Receive Date: 20190213
  Receipt Date: 20190213
  Transmission Date: 20190417
  Serious: Yes (Hospitalization, Other)
  Sender: FDA-Public Use
  Company Number: US-FLAMINGO-002712

PATIENT
  Age: 29 Year
  Sex: Female

DRUGS (4)
  1. METRONIDAZOLE. [Suspect]
     Active Substance: METRONIDAZOLE
     Indication: BACTERIAL VAGINOSIS
     Dosage: OFF AND ON FROM DECEMBER 2015 TO JANUARY 2016
     Dates: start: 201512, end: 201601
  2. VANCOMYCIN [Suspect]
     Active Substance: VANCOMYCIN
     Indication: CLOSTRIDIUM DIFFICILE COLITIS
     Dosage: SHE WAS AGAIN PRESCRIBED VANCOMYCIN, WHICH SHE TOOK FOR OVER A MONTH.
     Route: 048
  3. CIPROFLOXACIN. [Suspect]
     Active Substance: CIPROFLOXACIN
     Indication: DYSURIA
     Dosage: OFF AND ON FROM DECEMBER 2015 TO JANUARY 2016
     Route: 048
     Dates: start: 2015
  4. CLINDAMYCIN. [Suspect]
     Active Substance: CLINDAMYCIN
     Indication: CHRONIC TONSILLITIS
     Dosage: SINGLE DOSE
     Dates: start: 201509

REACTIONS (3)
  - Clostridium difficile colitis [Recovered/Resolved]
  - Colitis [Recovered/Resolved]
  - Condition aggravated [Recovered/Resolved]

NARRATIVE: CASE EVENT DATE: 201606
